FAERS Safety Report 8978450 (Version 2)
Quarter: 2013Q1

REPORT INFORMATION
  Report Type: Spontaneous
  Country: US (occurrence: US)
  Receive Date: 20121221
  Receipt Date: 20130131
  Transmission Date: 20140127
  Serious: Yes (Hospitalization)
  Sender: FDA-Public Use
  Company Number: US-BIOGENIDEC-2012BI061125

PATIENT
  Age: 45 Year
  Sex: Female

DRUGS (17)
  1. TYSABRI [Suspect]
     Indication: MULTIPLE SCLEROSIS
     Route: 042
     Dates: start: 20110521, end: 20120822
  2. WARFARIN [Concomitant]
  3. METHYLPREDNISOLONE [Concomitant]
  4. HYDROCODONE-ACETAMINOPHEN [Concomitant]
  5. AMITRIPTYLINE [Concomitant]
  6. GABAPENTIN [Concomitant]
  7. ZOLPIDEM [Concomitant]
  8. LEVOTHYROXINE [Concomitant]
  9. CARBAMAZEPINE [Concomitant]
  10. FUROSEMIDE [Concomitant]
  11. BACLOFEN [Concomitant]
  12. AMANTADINE [Concomitant]
  13. HYDROXYCHLOROQUINE [Concomitant]
  14. ARTIFICIAL SALIVA SPRAY [Concomitant]
  15. POTASSIUM CHLORIDE [Concomitant]
  16. CEVIMELINE HCL [Concomitant]
  17. FOLIC ACID [Concomitant]

REACTIONS (1)
  - Cellulitis [Recovered/Resolved]
